FAERS Safety Report 7469633-2 (Version None)
Quarter: 2011Q2

REPORT INFORMATION
  Report Type: 
  Country: None (occurrence: None)
  Receive Date: 20110506
  Receipt Date: 20110506
  Transmission Date: 20111010
  Serious: Yes (Hospitalization)
  Sender: FDA-Public Use
  Company Number: None

PATIENT
  Sex: Male
  Weight: 84.3 kg

DRUGS (6)
  1. CYCLOPHOSPHAMIDE [Suspect]
     Dosage: 2110 MG
  2. PEG-L-ASPARAGINASE (K-H) [Suspect]
     Dosage: 5275 UNIT
  3. CYTARABINE [Suspect]
     Dosage: 1264 MG
  4. METHOTREXATE [Suspect]
     Dosage: 45 MG
  5. VINCRISTINE SULFATE [Suspect]
     Dosage: 2 MG
  6. MERCAPTOPURINE [Suspect]
     Dosage: 1750 MG

REACTIONS (3)
  - PULMONARY EMBOLISM [None]
  - OEDEMA PERIPHERAL [None]
  - DYSPNOEA [None]
